FAERS Safety Report 9168574 (Version 1)
Quarter: 2013Q1

REPORT INFORMATION
  Report Type: Spontaneous
  Country: FR (occurrence: FR)
  Receive Date: 20130318
  Receipt Date: 20130318
  Transmission Date: 20140127
  Serious: Yes (Disabling)
  Sender: FDA-Public Use
  Company Number: FR-009507513-1303FRA004648

PATIENT
  Age: 35 Year
  Sex: Male

DRUGS (9)
  1. REBETOL [Suspect]
     Dosage: UNK
     Route: 048
     Dates: start: 200602
  2. PEGASYS [Suspect]
     Dosage: UNK
     Route: 058
     Dates: end: 20060501
  3. INTERFERON ALFA [Suspect]
     Dosage: UNK
     Dates: start: 20060601, end: 20070801
  4. TOPALGIC (TRAMADOL HYDROCHLORIDE) [Concomitant]
     Dosage: 100 MG, TID
  5. LASILIX [Concomitant]
     Dosage: 40 MG, BID
  6. ALDACTONE TABLETS [Concomitant]
     Dosage: 25 MG, QD
  7. COVERSYL (PERINDOPRIL ARGININE) [Concomitant]
     Dosage: 2 MG, QD
  8. KALETRA [Concomitant]
     Dosage: 3 DF, BID
  9. VIREAD [Concomitant]
     Dosage: 1 DF, UNK

REACTIONS (1)
  - Pulmonary arterial hypertension [Not Recovered/Not Resolved]
